FAERS Safety Report 5040284-2 (Version None)
Quarter: 2006Q2

REPORT INFORMATION
  Report Type: 
  Country: None (occurrence: None)
  Receive Date: 20060601
  Receipt Date: 20060227
  Transmission Date: 20061013
  Serious: No
  Sender: FDA-Public Use
  Company Number: 2005PV000178

PATIENT
  Age: 68 Year
  Sex: Female
  Weight: 61.2356 kg

DRUGS (14)
  1. BYETTA [Suspect]
     Indication: DIABETES MELLITUS NON-INSULIN-DEPENDENT
     Dosage: SEE IMAGE
     Route: 058
     Dates: start: 20050627, end: 20050701
  2. BYETTA [Suspect]
     Indication: DIABETES MELLITUS NON-INSULIN-DEPENDENT
     Dosage: SEE IMAGE
     Route: 058
     Dates: start: 20060209
  3. GLUCOPHAGE [Concomitant]
  4. ACTOS [Concomitant]
  5. LEVOTHYROXINE SODIUM [Concomitant]
  6. DIOVAN [Concomitant]
  7. WELLBUTRIN [Concomitant]
  8. MOBIC [Concomitant]
  9. ARIMIDEX [Concomitant]
  10. GABAPENTIN [Concomitant]
  11. METHADONE HCL [Concomitant]
  12. ENDOCET [Concomitant]
  13. ACTOS [Concomitant]
  14. GLUCOVANCE [Concomitant]

REACTIONS (6)
  - ABDOMINAL PAIN UPPER [None]
  - DECREASED APPETITE [None]
  - DRUG INEFFECTIVE [None]
  - HEADACHE [None]
  - NAUSEA [None]
  - VOMITING [None]
